FAERS Safety Report 10547470 (Version 1)
Quarter: 2014Q4

REPORT INFORMATION
  Report Type: Spontaneous
  Country: US (occurrence: US)
  Receive Date: 20141028
  Receipt Date: 20141028
  Transmission Date: 20150529
  Serious: No
  Sender: FDA-Public Use
  Company Number: US-BIOGENIDEC-2014BI111314

PATIENT
  Sex: Male

DRUGS (1)
  1. AVONEX [Suspect]
     Active Substance: INTERFERON BETA-1A
     Indication: MULTIPLE SCLEROSIS
     Route: 030
     Dates: start: 20040301

REACTIONS (6)
  - Dizziness [Unknown]
  - Asthenia [Recovered/Resolved]
  - Injection site rash [Unknown]
  - Adverse reaction [Unknown]
  - Pyrexia [Unknown]
  - Peripheral swelling [Unknown]
